FAERS Safety Report 9328797 (Version 1)
Quarter: 2013Q2

REPORT INFORMATION
  Report Type: Report from Study
  Country: US (occurrence: US)
  Receive Date: 20130604
  Receipt Date: 20130604
  Transmission Date: 20140414
  Serious: Yes (Hospitalization)
  Sender: FDA-Public Use
  Company Number: US-JNJFOC-20130520347

PATIENT
  Age: 54 Year
  Sex: Female
  Weight: 58.06 kg

DRUGS (6)
  1. SIMPONI [Suspect]
     Indication: PSORIATIC ARTHROPATHY
     Route: 058
     Dates: start: 2006
  2. CLONAZEPAM [Concomitant]
     Indication: SLEEP DISORDER
  3. LACTULOSE [Concomitant]
     Indication: HEPATIC CIRRHOSIS
     Dates: start: 201302
  4. ABILIFY [Concomitant]
  5. FOLIC ACID [Concomitant]
  6. PRILOSEC [Concomitant]

REACTIONS (5)
  - Hepatic cirrhosis [Not Recovered/Not Resolved]
  - Pain [Recovered/Resolved]
  - Inappropriate schedule of drug administration [Recovered/Resolved]
  - Device malfunction [Unknown]
  - Drug dose omission [Not Recovered/Not Resolved]
